FAERS Safety Report 16805471 (Version 2)
Quarter: 2020Q1

REPORT INFORMATION
  Report Type: Spontaneous
  Country: US (occurrence: US)
  Receive Date: 20190913
  Receipt Date: 20200324
  Transmission Date: 20200409
  Serious: Yes (Other)
  Sender: FDA-Public Use
  Company Number: US-PFIZER INC-2019392874

PATIENT
  Age: 66 Year
  Sex: Male
  Weight: 79.38 kg

DRUGS (5)
  1. RAPAMUNE [Suspect]
     Active Substance: SIROLIMUS
     Dosage: UNK (2 TABLETS A DAY OR 4 TABLETS A DAY VARIES BETWEEN BLOOD DRAWS)
  2. MYCOPHENOLATE [Concomitant]
     Active Substance: MYCOPHENOLIC ACID
     Indication: RENAL DISORDER PROPHYLAXIS
     Dosage: 250 MG, 2X/DAY (ONE IN THE AM AND ONE IN THE PM)
  3. RAPAMUNE [Suspect]
     Active Substance: SIROLIMUS
     Indication: LIVER TRANSPLANT
     Dosage: 2 MG, 2X/DAY (TAKES TWO TABLETS IN THE MORNING AND TWO TABLETS AT NIGHT/TAKES FOUR TABLETS PER DAY)
     Route: 048
     Dates: start: 201808, end: 201908
  4. TACROLIMUS. [Suspect]
     Active Substance: TACROLIMUS
     Indication: LIVER TRANSPLANT
     Dosage: 1 MG, 2X/DAY (ONE CAPSULE IN THE MORNING AND ONE CAPSULE AT NIGHT)
     Route: 048
     Dates: start: 2011, end: 2018
  5. TACROLIMUS. [Suspect]
     Active Substance: TACROLIMUS
     Dosage: UNK
     Route: 048
     Dates: start: 201908, end: 2019

REACTIONS (5)
  - Product use in unapproved indication [Unknown]
  - Cerebral disorder [Unknown]
  - Meniscus injury [Unknown]
  - Renal disorder [Unknown]
  - Off label use [Not Recovered/Not Resolved]

NARRATIVE: CASE EVENT DATE: 2018
